FAERS Safety Report 5897367-4 (Version None)
Quarter: 2008Q3

REPORT INFORMATION
  Report Type: 
  Country: None (occurrence: None)
  Receive Date: 20080902
  Receipt Date: 20071217
  Transmission Date: 20090109
  Serious: Yes (Other)
  Sender: FDA-Public Use
  Company Number: US021954

PATIENT

DRUGS (2)
  1. TIAGABINE HCL [Suspect]
     Indication: EPILEPSY
     Dosage: 12 TO 40 MG QD ORAL
     Route: 048
  2. ANTIEPILEPTIC DRUGS [Concomitant]

REACTIONS (1)
  - ENCEPHALOPATHY [None]
